FAERS Safety Report 8975122 (Version 2)
Quarter: 2013Q2

REPORT INFORMATION
  Report Type: Report from Study
  Country: MX (occurrence: MX)
  Receive Date: 20121219
  Receipt Date: 20130520
  Transmission Date: 20140414
  Serious: Yes (Death, Hospitalization, Other)
  Sender: FDA-Public Use
  Company Number: PHHY2012MX116861

PATIENT
  Age: 85 Year
  Sex: Female

DRUGS (2)
  1. EXFORGE [Suspect]
     Indication: HYPERTENSION
     Dosage: 1.5 DF (160 MG VALS/ 5 MG AMLO), 1 (IN THE MORNING), HALF AT NIGHT
     Route: 048
     Dates: start: 20090924
  2. AMARYL [Concomitant]
     Indication: DIABETES MELLITUS
     Dosage: 6 MG, DAILY (2MG AND 4 MG)
     Dates: start: 1998

REACTIONS (3)
  - Cardiac failure [Fatal]
  - Infarction [Recovered/Resolved]
  - Wrong technique in drug usage process [Unknown]
